FAERS Safety Report 7693027-8 (Version None)
Quarter: 2011Q3

REPORT INFORMATION
  Report Type: 
  Country: None (occurrence: None)
  Receive Date: 20110819
  Receipt Date: 20110805
  Transmission Date: 20111222
  Serious: Yes (Other)
  Sender: FDA-Public Use
  Company Number: US-UCBSA-038689

PATIENT
  Age: 71 Year
  Sex: Male

DRUGS (1)
  1. CIMZIA [Suspect]
     Route: 058

REACTIONS (3)
  - DEPRESSED LEVEL OF CONSCIOUSNESS [None]
  - OEDEMA PERIPHERAL [None]
  - MUSCLE TWITCHING [None]
